FAERS Safety Report 6139789-2 (Version None)
Quarter: 2009Q2

REPORT INFORMATION
  Report Type: 
  Country: None (occurrence: None)
  Receive Date: 20090401
  Receipt Date: 20090327
  Transmission Date: 20091009
  Serious: Yes (Hospitalization)
  Sender: FDA-Public Use
  Company Number: B0557725A

PATIENT
  Sex: Male

DRUGS (7)
  1. AUGMENTIN '125' [Suspect]
     Indication: ERYSIPELAS
     Dosage: 1G TWICE PER DAY
     Route: 048
     Dates: start: 20090103, end: 20090108
  2. ROCEPHIN [Suspect]
     Dosage: 1G PER DAY
     Route: 042
     Dates: start: 20090109, end: 20090117
  3. FUROSEMIDE [Suspect]
     Dosage: 40MG PER DAY
     Route: 048
  4. SPIRONOLACTONE [Suspect]
     Dosage: 50MG PER DAY
     Route: 048
  5. PLAVIX [Concomitant]
     Dosage: 75MG PER DAY
     Route: 048
  6. LERCANIDIPINE [Concomitant]
     Dosage: 10MG PER DAY
     Route: 048
  7. LOSARTAN POTASSIUM [Concomitant]
     Dosage: 100MG PER DAY
     Route: 065

REACTIONS (6)
  - ANTI FACTOR V ANTIBODY POSITIVE [None]
  - COAGULATION FACTOR V LEVEL DECREASED [None]
  - COAGULOPATHY [None]
  - ERYTHEMA [None]
  - HAEMATOMA [None]
  - PRURITUS [None]
